FAERS Safety Report 4674452-6 (Version None)
Quarter: 2005Q2

REPORT INFORMATION
  Report Type: 
  Country: None (occurrence: None)
  Receive Date: 20050524
  Receipt Date: 20050511
  Transmission Date: 20051028
  Serious: Yes (Hospitalization, Other)
  Sender: FDA-Public Use
  Company Number: US_000949116

PATIENT
  Age: 56 Year
  Sex: Female
  Weight: 118 kg

DRUGS (12)
  1. HUMALOG [Suspect]
     Indication: DIABETES MELLITUS
     Dosage: 25 U/2 DAY
     Dates: start: 19960101
  2. HUMULIN N [Suspect]
     Indication: DIABETES MELLITUS
     Dosage: 100 U DAY
     Dates: start: 19820101
  3. HUMULIN R [Suspect]
     Indication: DIABETES MELLITUS
     Dosage: 10 U/2 DAY
  4. ACTOS ^TAKEDA^ (PIGOGLITAZONE) [Concomitant]
  5. LANTUS [Concomitant]
  6. VASOTEC [Concomitant]
  7. LIPITOR [Concomitant]
  8. VIOXX [Concomitant]
  9. AMBIEN [Concomitant]
  10. TYLENOL W/ CODEINE [Concomitant]
  11. PRILOSEC [Concomitant]
  12. DIURETIC [Concomitant]

REACTIONS (7)
  - ABNORMAL BEHAVIOUR [None]
  - BLOOD GLUCOSE DECREASED [None]
  - BLOOD POTASSIUM INCREASED [None]
  - CONFUSIONAL STATE [None]
  - DIABETES MELLITUS INADEQUATE CONTROL [None]
  - INCORRECT DOSE ADMINISTERED [None]
  - UTERINE CANCER [None]
